FAERS Safety Report 17521037 (Version 1)
Quarter: 2020Q1

REPORT INFORMATION
  Report Type: Spontaneous
  Country: FR (occurrence: FR)
  Receive Date: 20200310
  Receipt Date: 20200310
  Transmission Date: 20200409
  Serious: Yes (Death, Other)
  Sender: FDA-Public Use
  Company Number: FR-PFIZER INC-2020102774

PATIENT
  Age: 72 Year
  Sex: Female

DRUGS (2)
  1. EXEMESTANE. [Suspect]
     Active Substance: EXEMESTANE
     Indication: BREAST CANCER METASTATIC
     Dosage: 25 MG, DAILY
  2. PALBOCICLIB [Suspect]
     Active Substance: PALBOCICLIB
     Indication: BREAST CANCER METASTATIC
     Dosage: 125 MG, CYCLIC, 4 WEEK CYCLES (3 WEEKS OF TREATMENT FOLLOWED BY 1 WEEK OFF)
     Route: 048

REACTIONS (5)
  - Neutropenia [Unknown]
  - Pneumocystis jirovecii pneumonia [Fatal]
  - Cell-mediated immune deficiency [Unknown]
  - Lymphopenia [Unknown]
  - Anaemia [Unknown]

NARRATIVE: CASE EVENT DATE: 201905
